FAERS Safety Report 4980372-X (Version None)
Quarter: 2006Q2

REPORT INFORMATION
  Report Type: 
  Country: None (occurrence: None)
  Receive Date: 20060424
  Receipt Date: 20050915
  Transmission Date: 20061013
  Serious: Yes (Hospitalization, Other)
  Sender: FDA-Public Use
  Company Number: US-AVENTIS-200516593US

PATIENT
  Sex: Female

DRUGS (7)
  1. KETEK [Suspect]
     Indication: ABDOMINAL PAIN
     Route: 048
     Dates: start: 20040904
  2. KETEK [Suspect]
     Route: 048
     Dates: start: 20041104, end: 20041111
  3. BEXTRA [Concomitant]
     Indication: ARTHRITIS
     Dosage: DOSE: UNKNOWN
  4. DIOVAN [Concomitant]
     Indication: HYPERTENSION
     Dosage: DOSE: UNKNOWN
  5. ACIPHEX [Concomitant]
     Dosage: DOSE: UNKNOWN
  6. PERIACTIN [Concomitant]
     Dosage: DOSE: UNKNOWN
  7. HYDROCODONE [Concomitant]
     Indication: ARTHRITIS
     Dosage: DOSE: UNKNOWN

REACTIONS (21)
  - ABDOMINAL PAIN [None]
  - ABDOMINAL PAIN UPPER [None]
  - ALANINE AMINOTRANSFERASE INCREASED [None]
  - ASPARTATE AMINOTRANSFERASE INCREASED [None]
  - BILIRUBIN CONJUGATED INCREASED [None]
  - BLOOD ALKALINE PHOSPHATASE INCREASED [None]
  - BLOOD BILIRUBIN INCREASED [None]
  - BLOOD LACTATE DEHYDROGENASE INCREASED [None]
  - CHOLESTASIS [None]
  - CHROMATURIA [None]
  - DECREASED APPETITE [None]
  - FAECES PALE [None]
  - FATIGUE [None]
  - FLANK PAIN [None]
  - GAMMA-GLUTAMYLTRANSFERASE INCREASED [None]
  - HEPATITIS [None]
  - JAUNDICE [None]
  - OCCULT BLOOD POSITIVE [None]
  - SCOLIOSIS [None]
  - SPINAL OSTEOARTHRITIS [None]
  - URINARY TRACT INFECTION [None]
